FAERS Safety Report 6552993-4 (Version None)
Quarter: 2010Q1

REPORT INFORMATION
  Report Type: 
  Country: None (occurrence: None)
  Receive Date: 20100127
  Receipt Date: 20100115
  Transmission Date: 20100710
  Serious: Yes (Hospitalization)
  Sender: FDA-Public Use
  Company Number: US-BIOGENIDEC-2010BI002366

PATIENT
  Age: 55 Year
  Sex: Female

DRUGS (1)
  1. TYSABRI [Suspect]
     Indication: MULTIPLE SCLEROSIS
     Route: 042
     Dates: start: 20060927

REACTIONS (7)
  - AMNESIA [None]
  - AUTONOMIC NERVOUS SYSTEM IMBALANCE [None]
  - DIARRHOEA [None]
  - MEAN ARTERIAL PRESSURE DECREASED [None]
  - MULTIPLE SCLEROSIS [None]
  - NAUSEA [None]
  - VOMITING [None]
